FAERS Safety Report 8611509-9 (Version None)
Quarter: 2012Q3

REPORT INFORMATION
  Report Type: 
  Country: None (occurrence: None)
  Receive Date: 20120809
  Receipt Date: 20120725
  Transmission Date: 20120928
  Serious: Yes (Death, Other)
  Sender: FDA-Public Use
  Company Number: 2012MA009095

PATIENT
  Age: 14 Year
  Sex: Male
  Weight: 113.3993 kg

DRUGS (12)
  1. SERTRALINE HYDROCHLORIDE [Suspect]
     Dosage: PO
     Route: 048
  2. ARIPIPRAZOLE [Suspect]
     Dosage: PO
     Route: 048
  3. CODEINE SULFATE [Suspect]
     Dosage: PO
     Route: 048
  4. LISDEXAMFETAMINE DIMESYLATE [Suspect]
     Dosage: PO
     Route: 048
  5. ACETAMINOPHEN AND CODEINE PHOSPHATE [Suspect]
     Indication: ABSCESS
     Dosage: PO
     Route: 048
  6. CLONIDINE HCL [Suspect]
     Dosage: PO
     Route: 048
  7. VALPROIC ACID [Suspect]
     Dosage: PO
     Route: 048
  8. DIPHENHYDRAMINE HYDROCHLORIDE [Suspect]
     Dosage: PO
     Route: 048
  9. PENICILLIN G POTASSIUM [Suspect]
     Indication: WISDOM TEETH REMOVAL
     Dosage: PO
     Route: 048
  10. KADIAN [Suspect]
     Dosage: PO
     Route: 048
  11. QUETIAPINE [Suspect]
     Dosage: PO
     Route: 048
  12. MELOXICAM [Suspect]
     Dosage: PO
     Route: 048

REACTIONS (9)
  - UNRESPONSIVE TO STIMULI [None]
  - SNORING [None]
  - ULCER [None]
  - PAIN IN JAW [None]
  - HEADACHE [None]
  - HEPATOSPLENOMEGALY [None]
  - PYREXIA [None]
  - PULMONARY OEDEMA [None]
  - APNOEA [None]
